FAERS Safety Report 15903087 (Version 11)
Quarter: 2021Q4

REPORT INFORMATION
  Report Type: Spontaneous
  Country: GB (occurrence: GB)
  Receive Date: 20190202
  Receipt Date: 20211209
  Transmission Date: 20220303
  Serious: Yes (Life-Threatening, Hospitalization, Disabling, Other)
  Sender: FDA-Public Use
  Company Number: None

PATIENT
  Age: 42 Year
  Sex: Female
  Weight: 98 kg

DRUGS (82)
  1. DOCETAXEL [Suspect]
     Active Substance: DOCETAXEL
     Indication: Breast cancer metastatic
     Route: 042
     Dates: start: 20160718, end: 20160830
  2. LETROZOLE [Suspect]
     Active Substance: LETROZOLE
     Indication: HER2 positive breast cancer
     Dosage: 2.5 MG, QD
     Route: 048
     Dates: start: 20170124
  3. PERTUZUMAB [Suspect]
     Active Substance: PERTUZUMAB
     Indication: Breast cancer metastatic
     Dosage: 840MG FIRST DOSE THEN 420MG, DOSAGE FORM: INFUSION, SOLUTION
     Route: 042
     Dates: start: 20160718, end: 20160830
  4. HERCEPTIN [Suspect]
     Active Substance: TRASTUZUMAB
     Indication: Breast cancer metastatic
     Dosage: 798MG LOADING THEN 609MG, INFUSION, SOLUTION
     Route: 042
     Dates: start: 20160718, end: 20160830
  5. DOXYCYCLINE [Suspect]
     Active Substance: DOXYCYCLINE
     Indication: Rash
     Route: 048
     Dates: start: 20160803, end: 20160821
  6. ONDANSETRON [Concomitant]
     Active Substance: ONDANSETRON
     Indication: Nausea
     Route: 048
     Dates: start: 20160908
  7. MAGNASPARTATE [Concomitant]
     Indication: Blood magnesium decreased
     Dates: start: 20160908
  8. TINZAPARIN [Concomitant]
     Active Substance: TINZAPARIN
  9. CITALOPRAM [Concomitant]
     Active Substance: CITALOPRAM HYDROBROMIDE
     Indication: Depression
     Route: 048
     Dates: start: 20160921
  10. ACETAMINOPHEN [Concomitant]
     Active Substance: ACETAMINOPHEN
     Indication: Pain
     Route: 048
     Dates: start: 20160908
  11. FLUCLOXACILLIN [Concomitant]
     Active Substance: FLUCLOXACILLIN
  12. DIHYDROCODEINE [Concomitant]
     Active Substance: DIHYDROCODEINE
     Indication: Pain
     Route: 048
     Dates: start: 20160908
  13. CYCLIZINE [Concomitant]
     Active Substance: CYCLIZINE
     Indication: Nausea
     Dosage: AS NEEDED
     Route: 048
     Dates: start: 20160908
  14. CLOPIDOGREL [Concomitant]
     Active Substance: CLOPIDOGREL BISULFATE
     Indication: Pneumonia
  15. LOPERAMIDE [Concomitant]
     Active Substance: LOPERAMIDE
     Indication: Diarrhoea
     Dosage: UP TO 4 TIMES A DAY IF NEEDED FOR LOOSE
     Route: 048
     Dates: start: 20161230
  16. ALBUTEROL [Concomitant]
     Active Substance: ALBUTEROL
     Indication: Pneumonia
  17. FUROSEMIDE [Concomitant]
     Active Substance: FUROSEMIDE
     Indication: Acute kidney injury
  18. TOLTERODINE [Concomitant]
     Active Substance: TOLTERODINE
     Indication: Acute kidney injury
  19. OXYCODONE HYDROCHLORIDE [Concomitant]
     Active Substance: OXYCODONE HYDROCHLORIDE
     Indication: Pain
  20. HYDROCORTISONE [Concomitant]
     Active Substance: HYDROCORTISONE
     Indication: Neutropenic sepsis
  21. MAGNESIUM SULFATE [Concomitant]
     Active Substance: MAGNESIUM SULFATE
  22. NOREPINEPHRINE [Concomitant]
     Active Substance: NOREPINEPHRINE
  23. MEROPENEM [Concomitant]
     Active Substance: MEROPENEM
  24. POTASSIUM CHLORIDE [Concomitant]
     Active Substance: POTASSIUM CHLORIDE
  25. CODEINE [Concomitant]
     Active Substance: CODEINE
  26. MORPHINE [Concomitant]
     Active Substance: MORPHINE
  27. DANAPAROID [Concomitant]
     Active Substance: DANAPAROID
  28. NITROGLYCERIN [Concomitant]
     Active Substance: NITROGLYCERIN
     Dosage: GTN
  29. TRANEXAMIC ACID [Concomitant]
     Active Substance: TRANEXAMIC ACID
  30. LEVOMEPROMAZINE [Concomitant]
     Active Substance: LEVOMEPROMAZINE
  31. TAUROLIDINE [Concomitant]
     Active Substance: TAUROLIDINE
  32. DEXTROSE [Concomitant]
     Active Substance: DEXTROSE
     Route: 042
  33. ZOPICLONE [Concomitant]
     Active Substance: ZOPICLONE
  34. ALFENTANIL [Concomitant]
     Active Substance: ALFENTANIL
  35. ALTEPLASE [Concomitant]
     Active Substance: ALTEPLASE
     Indication: Colitis ischaemic
  36. ARGATROBAN [Concomitant]
     Active Substance: ARGATROBAN
     Indication: Colitis ischaemic
     Route: 065
  37. ASPIRIN [Concomitant]
     Active Substance: ASPIRIN
     Indication: Colitis ischaemic
     Route: 065
  38. BISOPROLOL [Concomitant]
     Active Substance: BISOPROLOL
     Indication: Acute kidney injury
     Route: 065
  39. BONJELA [Concomitant]
     Active Substance: CETALKONIUM CHLORIDE\CHOLINE SALICYLATE\MENTHOL
     Indication: Neutropenic sepsis
     Route: 065
  40. BUTYLSCOPOLAMINE BROMIDE [Concomitant]
     Active Substance: BUTYLSCOPOLAMINE BROMIDE
     Indication: Colitis ischaemic
  41. CALCIUM CHLORIDE [Concomitant]
     Active Substance: CALCIUM CHLORIDE
     Indication: Product used for unknown indication
     Route: 065
  42. CALCIUM GLUCONATE [Concomitant]
     Active Substance: CALCIUM GLUCONATE
     Indication: Colitis ischaemic
  43. CHLORHEXIDINE [Concomitant]
     Active Substance: CHLORHEXIDINE
     Indication: Colitis ischaemic
     Route: 065
  44. CHLORPHENIRAMINE MALEATE [Concomitant]
     Active Substance: CHLORPHENIRAMINE MALEATE
     Indication: Neutropenic sepsis
     Route: 065
  45. CIPROFLOXACIN [Concomitant]
     Active Substance: CIPROFLOXACIN
     Indication: Neutropenic sepsis
     Route: 065
  46. DALTEPARIN [Concomitant]
     Active Substance: DALTEPARIN
     Indication: Acute kidney injury
     Route: 065
  47. DEXTROSE [Concomitant]
     Active Substance: DEXTROSE
     Indication: Product used for unknown indication
     Route: 065
  48. DIAZEPAM [Concomitant]
     Active Substance: DIAZEPAM
     Indication: Colitis ischaemic
     Route: 048
  49. EPOPROSTENOL [Concomitant]
     Active Substance: EPOPROSTENOL
     Indication: Acute kidney injury
     Route: 065
  50. ERDOSTEINE [Concomitant]
     Active Substance: ERDOSTEINE
     Indication: Pneumonia
     Route: 065
  51. ERDOSTEINE [Concomitant]
     Active Substance: ERDOSTEINE
     Indication: Pneumonia
     Dosage: 10 MMOL
     Route: 065
     Dates: start: 20160908
  52. ERYTHROMYCIN [Concomitant]
     Active Substance: ERYTHROMYCIN
     Indication: Neutropenic sepsis
     Route: 065
  53. FILGRASTIM [Concomitant]
     Active Substance: FILGRASTIM
     Indication: Neutropenic sepsis
     Route: 065
  54. FLUCONAZOLE [Concomitant]
     Active Substance: FLUCONAZOLE
     Indication: Neutropenic sepsis
     Route: 065
  55. FONDAPARINUX [Concomitant]
     Active Substance: FONDAPARINUX
     Indication: Colitis ischaemic
     Route: 065
  56. FRAGMIN [Concomitant]
     Active Substance: DALTEPARIN SODIUM
     Indication: Vomiting
     Route: 065
  57. GENTAMICIN [Concomitant]
     Active Substance: GENTAMICIN
     Indication: Product used for unknown indication
     Route: 065
  58. NITROGLYCERIN [Concomitant]
     Active Substance: NITROGLYCERIN
     Indication: Product used for unknown indication
     Route: 065
  59. CALCIUM CHLORIDE\POTASSIUM CHLORIDE\SODIUM CHLORIDE\SODIUM LACTATE [Concomitant]
     Active Substance: CALCIUM CHLORIDE\POTASSIUM CHLORIDE\SODIUM CHLORIDE\SODIUM LACTATE
     Indication: Neutropenic sepsis
     Route: 065
  60. HEPARIN [Concomitant]
     Active Substance: HEPARIN SODIUM
     Indication: Acute kidney injury
     Route: 065
  61. LANSOPRAZOLE [Concomitant]
     Active Substance: LANSOPRAZOLE
     Indication: Colitis ischaemic
     Route: 048
     Dates: start: 20160908
  62. MAGNESIUM SULFATE [Concomitant]
     Active Substance: MAGNESIUM SULFATE
     Indication: Product used for unknown indication
     Route: 065
  63. METARAMINOL [Concomitant]
     Active Substance: METARAMINOL
     Indication: Colitis ischaemic
     Route: 065
  64. METOCLOPRAMIDE [Concomitant]
     Active Substance: METOCLOPRAMIDE
     Indication: Colitis ischaemic
     Route: 065
  65. METRONIDAZOLE [Concomitant]
     Active Substance: METRONIDAZOLE
     Indication: Colitis ischaemic
     Route: 065
  66. MIDAZOLAM [Concomitant]
     Active Substance: MIDAZOLAM
     Indication: Colitis ischaemic
     Route: 065
  67. CHLORHEXIDINE HYDROCHLORIDE\NEOMYCIN SULFATE [Concomitant]
     Active Substance: CHLORHEXIDINE HYDROCHLORIDE\NEOMYCIN SULFATE
     Indication: Colitis ischaemic
     Route: 065
  68. NOREPINEPHRINE [Concomitant]
     Active Substance: NOREPINEPHRINE
     Indication: Product used for unknown indication
     Route: 065
  69. OMEPRAZOLE [Concomitant]
     Active Substance: OMEPRAZOLE
     Indication: Colitis ischaemic
     Route: 065
  70. MORPHINE SULFATE [Concomitant]
     Active Substance: MORPHINE SULFATE
     Indication: Product used for unknown indication
  71. PROPOFOL [Concomitant]
     Active Substance: PROPOFOL
     Indication: Colitis ischaemic
     Route: 065
  72. RAMIPRIL [Concomitant]
     Active Substance: RAMIPRIL
     Indication: Acute kidney injury
     Route: 065
  73. SANDOCAL [Concomitant]
     Indication: Acute kidney injury
     Route: 065
  74. SODIUM CITRATE [Concomitant]
     Active Substance: SODIUM CITRATE
     Indication: Product used for unknown indication
     Route: 065
  75. SODIUM LACTATE [Concomitant]
     Active Substance: SODIUM LACTATE
     Indication: Product used for unknown indication
     Route: 065
  76. TAUROLIDINE [Concomitant]
     Active Substance: TAUROLIDINE
     Indication: Product used for unknown indication
     Route: 065
  77. PIPERACILLIN SODIUM\TAZOBACTAM SODIUM [Concomitant]
     Active Substance: PIPERACILLIN SODIUM\TAZOBACTAM SODIUM
     Indication: Neutropenic sepsis
     Route: 065
  78. TEICOPLANIN [Concomitant]
     Active Substance: TEICOPLANIN
     Indication: Colitis ischaemic
     Route: 065
  79. VASOPRESSIN [Concomitant]
     Active Substance: VASOPRESSIN
     Indication: Neutropenic sepsis
     Route: 065
  80. DOXYCYCLINE [Concomitant]
     Active Substance: DOXYCYCLINE
     Indication: Rash
     Route: 048
     Dates: start: 20160803, end: 20160821
  81. PIZOTYLINE [Concomitant]
     Active Substance: PIZOTYLINE
     Indication: Acute kidney injury
  82. TRASTUZUMAB [Suspect]
     Active Substance: TRASTUZUMAB
     Indication: Breast cancer metastatic
     Dosage: (08/08/16 TO 30/08/16 420 MG) 798MG LOADING THEN 609MG
     Route: 042
     Dates: start: 20160718, end: 20160830

REACTIONS (11)
  - Abdominal pain [Recovered/Resolved]
  - Pneumonia [Recovered/Resolved]
  - Neutropenic sepsis [Not Recovered/Not Resolved]
  - Perforation [Recovering/Resolving]
  - Colitis [Recovering/Resolving]
  - Vomiting [Recovered/Resolved]
  - Colitis ischaemic [Not Recovered/Not Resolved]
  - Diarrhoea [Recovered/Resolved]
  - Acute kidney injury [Unknown]
  - Peritonitis [Recovered/Resolved]
  - Rash [Unknown]

NARRATIVE: CASE EVENT DATE: 20160803
